FAERS Safety Report 7107312-1 (Version None)
Quarter: 2010Q4

REPORT INFORMATION
  Report Type: 
  Country: None (occurrence: None)
  Receive Date: 20101117
  Receipt Date: 20101108
  Transmission Date: 20110411
  Serious: Yes (Hospitalization)
  Sender: FDA-Public Use
  Company Number: US-BIOGENIDEC-2010BI026865

PATIENT
  Age: 35 Year
  Sex: Female
  Weight: 73 kg

DRUGS (22)
  1. TYSABRI [Suspect]
     Indication: MULTIPLE SCLEROSIS
     Route: 042
     Dates: start: 20080714, end: 20100609
  2. CELEXA [Concomitant]
     Indication: PAIN
  3. CELEXA [Concomitant]
     Indication: FIBROMYALGIA
  4. CYMBALTA [Concomitant]
     Indication: PAIN
     Route: 048
  5. CYMBALTA [Concomitant]
     Indication: FIBROMYALGIA
     Route: 048
  6. FLUTICASONE PROPIONATE [Concomitant]
  7. NEXIUM [Concomitant]
     Route: 048
  8. OXYCONTIN [Concomitant]
     Indication: PAIN
     Route: 048
  9. OXYCONTIN [Concomitant]
     Indication: FIBROMYALGIA
     Route: 048
  10. OXYCODONE HCL [Concomitant]
     Indication: BREAKTHROUGH PAIN
     Route: 048
  11. HYDROXYZINE [Concomitant]
  12. DIAZEPAM [Concomitant]
     Indication: PAIN
     Route: 048
  13. DIAZEPAM [Concomitant]
     Indication: FIBROMYALGIA
     Route: 048
  14. IMITREX [Concomitant]
     Indication: INSOMNIA
  15. SENNA [Concomitant]
     Route: 048
  16. OXYBUTIN [Concomitant]
  17. MELOXICAM [Concomitant]
     Route: 048
  18. LYRICA [Concomitant]
     Route: 048
  19. ZOFRAN [Concomitant]
     Route: 048
  20. SKELAXIN [Concomitant]
     Indication: PAIN
     Route: 048
  21. SKELAXIN [Concomitant]
     Indication: FIBROMYALGIA
     Route: 048
  22. TEGRETOL-XR [Concomitant]
     Route: 048

REACTIONS (6)
  - CENTRAL NERVOUS SYSTEM LESION [None]
  - HAEMATURIA [None]
  - INSOMNIA [None]
  - INTERSTITIAL LUNG DISEASE [None]
  - MIGRAINE [None]
  - ORAL PAIN [None]
